FAERS Safety Report 18639528 (Version 1)
Quarter: 2020Q4

REPORT INFORMATION
  Report Type: Report from Study
  Country: US (occurrence: US)
  Receive Date: 20201219
  Receipt Date: 20201219
  Transmission Date: 20210114
  Serious: Yes (Hospitalization)
  Sender: FDA-Public Use
  Company Number: NVSC2020US329266

PATIENT
  Sex: Male

DRUGS (1)
  1. ENTRESTO [Suspect]
     Active Substance: SACUBITRIL\VALSARTAN
     Indication: PRODUCT USED FOR UNKNOWN INDICATION
     Dosage: 50 MG, BID
     Route: 048

REACTIONS (7)
  - Cough [Recovering/Resolving]
  - Movement disorder [Recovering/Resolving]
  - Wrist fracture [Recovering/Resolving]
  - Head injury [Recovering/Resolving]
  - Rib fracture [Recovering/Resolving]
  - Sneezing [Recovering/Resolving]
  - Fall [Recovering/Resolving]
